FAERS Safety Report 8002758 (Version 4)
Quarter: 2012Q4

REPORT INFORMATION
  Report Type: 
  Country: CA (occurrence: CA)
  Receive Date: 20110622
  Receipt Date: 20121106
  Transmission Date: 20130627
  Serious: Yes (Hospitalization)
  Sender: FDA-Public Use
  Company Number: PHHY2011CA52549

PATIENT
  Sex: Male

DRUGS (2)
  1. EXJADE [Suspect]
     Indication: MYELODYSPLASTIC SYNDROME
     Dosage: 2000 mg,daily
     Route: 048
     Dates: end: 20110601
  2. EXJADE [Suspect]
     Dosage: 2500 mg, QD
     Route: 048

REACTIONS (3)
  - Cardiac disorder [Unknown]
  - Blood iron increased [Unknown]
  - Drug ineffective [Unknown]
